FAERS Safety Report 6512940-8 (Version None)
Quarter: 2009Q4

REPORT INFORMATION
  Report Type: 
  Country: None (occurrence: None)
  Receive Date: 20091222
  Receipt Date: 20091222
  Transmission Date: 20100525
  Serious: Yes (Hospitalization)
  Sender: FDA-Public Use
  Company Number: None

PATIENT
  Age: 58 Year
  Sex: Male
  Weight: 60.6 kg

DRUGS (13)
  1. OLANZAPINE [Suspect]
     Indication: BIPOLAR DISORDER
     Dosage: 30MG PO QHS
     Route: 048
     Dates: start: 20051001
  2. OLANZAPINE [Suspect]
     Indication: SCHIZOAFFECTIVE DISORDER
     Dosage: 30MG PO QHS
     Route: 048
     Dates: start: 20051001
  3. ALBUTEROL/IPRATROP BR [Concomitant]
  4. DOCUSATE NA [Concomitant]
  5. FLUNISOLIDE [Concomitant]
  6. VICODIN [Concomitant]
  7. HYDROXYCHLOROQUINE SULFATE [Concomitant]
  8. LORAZEPAM [Concomitant]
  9. MOXIFLOXACIN HCL [Concomitant]
  10. PAROXETINE HCL [Concomitant]
  11. HYDROXYINE PAMOATE [Concomitant]
  12. TOBRAMYCIN INJ INHL VIA NEB. [Concomitant]
  13. PREDNISONE [Concomitant]

REACTIONS (1)
  - LUNG INFECTION PSEUDOMONAL [None]
